FAERS Safety Report 8418195-1 (Version None)
Quarter: 2012Q2

REPORT INFORMATION
  Report Type: 
  Country: None (occurrence: None)
  Receive Date: 20120531
  Receipt Date: 20120515
  Transmission Date: 20120825
  Serious: Yes (Death, Other)
  Sender: FDA-Public Use
  Company Number: FK201201415

PATIENT
  Age: 49 Year
  Sex: Female

DRUGS (9)
  1. EPIRUBICIN [Suspect]
     Indication: BREAST CANCER STAGE II
  2. FLUOROURACIL [Suspect]
     Indication: BREAST CANCER STAGE II
  3. CYTARABINE [Concomitant]
  4. CYCLOPHOSPHAMIDE [Suspect]
     Indication: BREAST CANCER STAGE II
  5. VINCRISTINE [Concomitant]
  6. DOXORUBICIN HCL [Concomitant]
  7. DEXAMETHASONE [Concomitant]
  8. METHOTREXATE [Concomitant]
  9. PREDNISOLONE [Suspect]

REACTIONS (8)
  - ACUTE LYMPHOCYTIC LEUKAEMIA [None]
  - DIZZINESS [None]
  - MULTI-ORGAN FAILURE [None]
  - PANCYTOPENIA [None]
  - ASTHENIA [None]
  - DECREASED APPETITE [None]
  - PNEUMONIA [None]
  - SEPTIC SHOCK [None]
